FAERS Safety Report 7560185-5 (Version None)
Quarter: 2011Q2

REPORT INFORMATION
  Report Type: 
  Country: None (occurrence: None)
  Receive Date: 20110621
  Receipt Date: 20110613
  Transmission Date: 20111010
  Serious: Yes (Other)
  Sender: FDA-Public Use
  Company Number: A0932061A

PATIENT
  Age: 55 Year
  Sex: Female

DRUGS (2)
  1. GSK AUTOINJECTOR [Suspect]
     Indication: MIGRAINE
     Route: 042
  2. SUMATRIPTAN SUCCINATE [Suspect]
     Indication: MIGRAINE
     Dosage: 6MG UNKNOWN
     Route: 058

REACTIONS (4)
  - PRODUCT QUALITY ISSUE [None]
  - BURNING SENSATION [None]
  - HAEMORRHAGE [None]
  - ERYTHEMA [None]
